FAERS Safety Report 15877041 (Version 3)
Quarter: 2019Q3

REPORT INFORMATION
  Report Type: Report from Study
  Country: GB (occurrence: GB)
  Receive Date: 20190128
  Receipt Date: 20190927
  Transmission Date: 20191004
  Serious: Yes (Death, Hospitalization, Other)
  Sender: FDA-Public Use
  Company Number: GB-CELLTRION INC.-2019GB018011

PATIENT

DRUGS (6)
  1. TRUXIMA [Suspect]
     Active Substance: RITUXIMAB-ABBS
     Dosage: 800MG 3 WEEKLY IV AS PART OF 6 CYCLE CHEMOTHERAPY
     Route: 042
  2. PREDNISOLONE. [Concomitant]
     Active Substance: PREDNISOLONE
  3. TRUXIMA [Suspect]
     Active Substance: RITUXIMAB-ABBS
     Indication: DIFFUSE LARGE B-CELL LYMPHOMA
     Dosage: 800MG 3 WEEKLY IV AS PART OF 6 CYCLE CHEMOTHERAPY
     Route: 042
  4. GABAPENTIN. [Concomitant]
     Active Substance: GABAPENTIN
  5. CLENIL MODULITE [Concomitant]
     Active Substance: BECLOMETHASONE DIPROPIONATE
  6. SALBUTAMOL [Concomitant]
     Active Substance: ALBUTEROL

REACTIONS (10)
  - General physical health deterioration [Fatal]
  - Device occlusion [Recovered/Resolved]
  - Body temperature increased [Recovering/Resolving]
  - Bacteraemia [Recovering/Resolving]
  - Pulmonary embolism [Recovering/Resolving]
  - Death [Fatal]
  - Diffuse large B-cell lymphoma recurrent [Recovering/Resolving]
  - Pulmonary embolism [Recovered/Resolved]
  - Pelvi-ureteric obstruction [Recovering/Resolving]
  - Malaise [Recovering/Resolving]

NARRATIVE: CASE EVENT DATE: 20170701
